FAERS Safety Report 9831445 (Version 1)
Quarter: 2014Q1

REPORT INFORMATION
  Report Type: Spontaneous
  Country: BR (occurrence: BR)
  Receive Date: 20140121
  Receipt Date: 20140121
  Transmission Date: 20141002
  Serious: Yes (Life-Threatening, Other)
  Sender: FDA-Public Use
  Company Number: PHHY2014BR005813

PATIENT
  Sex: Female

DRUGS (4)
  1. VOLTAREN [Suspect]
     Dosage: UNK UKN, UNK
  2. TRAMAL [Suspect]
     Dosage: UNK UKN, UNK
  3. CORTISONE [Suspect]
     Dosage: UNK UKN, UNK
  4. ANTIHISTAMINES [Suspect]
     Dosage: UNK UKN, UNK

REACTIONS (12)
  - Anaphylactic shock [Unknown]
  - Swelling [Unknown]
  - Pruritus generalised [Unknown]
  - Pruritus [Unknown]
  - Urticaria [Unknown]
  - Rash [Unknown]
  - Spinal cord injury [Unknown]
  - Labyrinthitis [Unknown]
  - Confusional state [Unknown]
  - Dysphonia [Unknown]
  - Gait disturbance [Unknown]
  - Depression [Unknown]
